FAERS Safety Report 23652582 (Version 1)
Quarter: 2024Q1

REPORT INFORMATION
  Report Type: Spontaneous
  Country: US (occurrence: US)
  Receive Date: 20240320
  Receipt Date: 20240320
  Transmission Date: 20240409
  Serious: No
  Sender: FDA-Public Use
  Company Number: US-LEO Pharma-368737

PATIENT
  Age: 56 Year
  Sex: Male
  Weight: 119 kg

DRUGS (2)
  1. ADBRY [Suspect]
     Active Substance: TRALOKINUMAB-LDRM
     Indication: Dermatitis atopic
     Dosage: INJECT 4 SYRINGES (600 MG) ON DAY 1,
     Route: 058
     Dates: start: 20240311
  2. ADBRY [Suspect]
     Active Substance: TRALOKINUMAB-LDRM
     Indication: Dermatitis atopic
     Dosage: 2 SYRINGES (300 MG) EVERY OTHER WEEK THEREAFTER STARTING?ON DAY 15
     Route: 058

REACTIONS (2)
  - Dyspnoea [Recovered/Resolved]
  - Rash papular [Unknown]

NARRATIVE: CASE EVENT DATE: 20240313
